FAERS Safety Report 18668959 (Version 1)
Quarter: 2020Q4

REPORT INFORMATION
  Report Type: Other
  Country: DE (occurrence: DE)
  Receive Date: 20201228
  Receipt Date: 20201228
  Transmission Date: 20210114
  Serious: Yes (Other)
  Sender: FDA-Public Use
  Company Number: DE-APOTEX-2020AP025044

PATIENT
  Age: 37 Year
  Sex: Female

DRUGS (5)
  1. PAROXETINE. [Suspect]
     Active Substance: PAROXETINE
     Indication: SOCIAL PROBLEM
     Dosage: 40 MILLIGRAM
     Route: 065
     Dates: start: 2003, end: 2004
  2. FLUVOXAMINE [Suspect]
     Active Substance: FLUVOXAMINE
     Indication: SOCIAL PROBLEM
  3. FLUVOXAMINE [Suspect]
     Active Substance: FLUVOXAMINE
     Indication: FATIGUE
     Dosage: UNK (DIFFERENT DOSAGES)
     Route: 048
     Dates: start: 2001, end: 2004
  4. PAROXETINE. [Suspect]
     Active Substance: PAROXETINE
     Indication: FATIGUE
  5. ESCITALOPRAM [Suspect]
     Active Substance: ESCITALOPRAM OXALATE
     Indication: FATIGUE
     Dosage: UNK
     Route: 048
     Dates: start: 2004, end: 2004

REACTIONS (2)
  - Behaviour disorder [Unknown]
  - Suicidal behaviour [Unknown]
